FAERS Safety Report 25016764 (Version 1)
Quarter: 2025Q1

REPORT INFORMATION
  Report Type: Spontaneous
  Country: US (occurrence: US)
  Receive Date: 20250227
  Receipt Date: 20250227
  Transmission Date: 20250409
  Serious: No
  Sender: UCB
  Company Number: US-UCBSA-2024022343

PATIENT
  Age: 18 Year
  Sex: Female

DRUGS (6)
  1. LEVETIRACETAM [Suspect]
     Active Substance: LEVETIRACETAM
     Indication: Generalised tonic-clonic seizure
  2. LEVETIRACETAM [Suspect]
     Active Substance: LEVETIRACETAM
     Indication: Cerebral vasoconstriction
     Dosage: 500 MILLIGRAM, 2X/DAY (BID)
  3. LEVETIRACETAM [Suspect]
     Active Substance: LEVETIRACETAM
     Indication: Off label use
  4. MAGNESIUM [Concomitant]
     Active Substance: MAGNESIUM
     Indication: Generalised tonic-clonic seizure
  5. MAGNESIUM [Concomitant]
     Active Substance: MAGNESIUM
     Indication: Cerebral vasoconstriction
  6. NIMODIPINE [Concomitant]
     Active Substance: NIMODIPINE
     Indication: Vasodilatation

REACTIONS (1)
  - No adverse event [Unknown]
